FAERS Safety Report 16155306 (Version 2)
Quarter: 2019Q2

REPORT INFORMATION
  Report Type: Report from Study
  Country: US (occurrence: US)
  Receive Date: 20190403
  Receipt Date: 20190424
  Transmission Date: 20190711
  Serious: Yes (Hospitalization)
  Sender: FDA-Public Use
  Company Number: US-ALEXION PHARMACEUTICALS INC.-A201904785

PATIENT
  Age: 11 Year
  Sex: Female
  Weight: 19 kg

DRUGS (51)
  1. MELATONIN [Concomitant]
     Active Substance: MELATONIN
     Indication: SLEEP DISORDER
     Dosage: 3 MG, QHS (G-TUBE)
     Route: 050
     Dates: start: 20181001
  2. CUVPOSA                            /00196202/ [Concomitant]
     Dosage: 1 MG, Q8H PRN (G-TUBE)
     Route: 050
     Dates: start: 20181005
  3. CUVPOSA                            /00196202/ [Concomitant]
     Dosage: 1.0 MG, QID (G-TUBE)
     Route: 050
  4. NYSTOP [Concomitant]
     Active Substance: NYSTATIN
     Indication: DRUG THERAPY
     Dosage: 1 G, QD
     Route: 061
     Dates: start: 20190211
  5. KEPPRA [Concomitant]
     Active Substance: LEVETIRACETAM
     Dosage: 30 MG/KG, UNK
     Route: 042
  6. MIRALAX [Concomitant]
     Active Substance: POLYETHYLENE GLYCOL 3350
     Indication: PRODUCT USED FOR UNKNOWN INDICATION
     Dosage: 0.5 SCOOP, QD (G-TUBE)
     Route: 050
  7. ATROVENT [Concomitant]
     Active Substance: IPRATROPIUM BROMIDE
     Dosage: 2 PUFF, Q8H
     Route: 055
     Dates: start: 20190403
  8. MELATONIN [Concomitant]
     Active Substance: MELATONIN
     Dosage: 3 MG, QHS (G-TUBE)
     Route: 050
  9. EUCERIN                            /01160201/ [Concomitant]
     Active Substance: LANOLIN\MINERAL OIL\PETROLATUM
     Indication: PRODUCT USED FOR UNKNOWN INDICATION
     Dosage: UNK UNK, PRN
     Route: 061
  10. STRENSIQ [Suspect]
     Active Substance: ASFOTASE ALFA
     Indication: HYPOPHOSPHATASIA
     Dosage: 2 MG/KG, TIW
     Route: 058
     Dates: start: 20160511
  11. PROTONIX [Concomitant]
     Active Substance: PANTOPRAZOLE SODIUM
     Indication: GASTRIC PH INCREASED
     Dosage: UNK
     Route: 065
     Dates: start: 20170425
  12. MELATONIN [Concomitant]
     Active Substance: MELATONIN
     Dosage: 5 MG, QHS (G-TUBE)
     Route: 050
  13. CETAPHIL                           /02314901/ [Concomitant]
     Active Substance: COSMETICS
     Indication: PRODUCT USED FOR UNKNOWN INDICATION
     Dosage: UNK UNK, QD
     Route: 061
  14. SODIUM CHLORIDE. [Concomitant]
     Active Substance: SODIUM CHLORIDE
     Dosage: 3 VIALS, Q4H VIA NEBULIZER
     Route: 050
     Dates: start: 20190320
  15. SIMETHICONE (DIMETHICONE) [Concomitant]
     Active Substance: DIMETHICONE
     Indication: FLATULENCE
     Dosage: 20 MG, PRN (G-TUBE)
     Route: 050
  16. DIASTAT ACUDIAL [Concomitant]
     Active Substance: DIAZEPAM
     Indication: SEIZURE
     Dosage: 10 MG, PRN
     Route: 054
     Dates: start: 20181126
  17. SULFASALAZINE. [Concomitant]
     Active Substance: SULFASALAZINE
     Indication: PRODUCT USED FOR UNKNOWN INDICATION
     Dosage: 250 MG, TID (G-TUBE)
     Route: 050
  18. BACTROBAN [Concomitant]
     Active Substance: MUPIROCIN\MUPIROCIN CALCIUM
     Indication: DRY SKIN
     Dosage: 1 APPLICATION, PRN
     Route: 061
  19. SIMETHICONE (DIMETHICONE) [Concomitant]
     Active Substance: DIMETHICONE
     Indication: ABDOMINAL PAIN UPPER
  20. KEPPRA [Concomitant]
     Active Substance: LEVETIRACETAM
     Dosage: 400 MG, BID (G-TUBE)
     Route: 050
     Dates: start: 20190415
  21. HUMIRA [Concomitant]
     Active Substance: ADALIMUMAB
     Dosage: 40 MG, Q2W
     Route: 058
     Dates: start: 201901
  22. ATROVENT [Concomitant]
     Active Substance: IPRATROPIUM BROMIDE
     Indication: PRODUCT USED FOR UNKNOWN INDICATION
     Dosage: 5.0 MG, QD MORNING (G-TUBE)
     Route: 055
  23. REGLAN [Concomitant]
     Active Substance: METOCLOPRAMIDE HYDROCHLORIDE
     Dosage: 2 MG, QID (G-TUBE)
     Route: 050
     Dates: start: 20181030
  24. FOLVITE [Concomitant]
     Active Substance: FOLIC ACID
     Indication: PRODUCT USED FOR UNKNOWN INDICATION
     Dosage: 1.0 MG, QD (MORNING) (G-TUBE)
     Route: 050
  25. POLY-VI-SOL                        /00200301/ [Concomitant]
     Indication: PRODUCT USED FOR UNKNOWN INDICATION
     Dosage: 1 ML, QD MORNING (G-TUBE)
     Route: 050
     Dates: start: 20181227
  26. ATARAX [Concomitant]
     Active Substance: HYDROXYZINE HYDROCHLORIDE
     Indication: RHINORRHOEA
     Dosage: 15 MG, QHS PRN (G-TUBE)
     Route: 050
  27. KEPPRA [Concomitant]
     Active Substance: LEVETIRACETAM
     Dosage: 400 MG, BID (G-TUBE)
     Route: 050
     Dates: start: 20190408, end: 20190410
  28. HUMIRA [Concomitant]
     Active Substance: ADALIMUMAB
     Indication: COLITIS ULCERATIVE
     Dosage: 20 MG, Q2W
     Route: 058
  29. STRENSIQ [Suspect]
     Active Substance: ASFOTASE ALFA
     Dosage: 28 MG, TIW
     Route: 058
     Dates: start: 201605
  30. FLAGYL [Concomitant]
     Active Substance: METRONIDAZOLE\METRONIDAZOLE HYDROCHLORIDE
     Indication: HAEMATOCHEZIA
     Dosage: 93 MG, TID
     Route: 065
     Dates: start: 20170603
  31. CUVPOSA                            /00196202/ [Concomitant]
     Indication: SECRETION DISCHARGE
     Dosage: 1 MG, Q8H PRN (G-TUBE)
     Route: 050
     Dates: start: 20180724
  32. HYDRODIURIL [Concomitant]
     Active Substance: HYDROCHLOROTHIAZIDE
     Indication: PRODUCT USED FOR UNKNOWN INDICATION
     Dosage: 12.5 MG, QD (GASTRIC TUBE)
     Route: 050
     Dates: start: 20190215
  33. PRILOSEC [Concomitant]
     Active Substance: OMEPRAZOLE MAGNESIUM
     Indication: GASTROOESOPHAGEAL REFLUX DISEASE
     Dosage: 20 MG, QD (G-TUBE)
     Route: 050
     Dates: start: 20190216
  34. IBUPROFEN. [Concomitant]
     Active Substance: IBUPROFEN
     Indication: PRODUCT USED FOR UNKNOWN INDICATION
     Dosage: 100 MG, Q6H PRN (G-TUBE)
     Route: 050
  35. KEPPRA [Concomitant]
     Active Substance: LEVETIRACETAM
     Dosage: 20 MG/KG, UNK
     Route: 042
  36. ZYRTEC [Concomitant]
     Active Substance: CETIRIZINE HYDROCHLORIDE
     Indication: PRODUCT USED FOR UNKNOWN INDICATION
     Dosage: 5 MG, BID G-TUBE
     Route: 050
  37. REGLAN [Concomitant]
     Active Substance: METOCLOPRAMIDE HYDROCHLORIDE
     Dosage: 2 MG, QID (G-TUBE)
     Route: 050
     Dates: start: 20181001
  38. REGLAN [Concomitant]
     Active Substance: METOCLOPRAMIDE HYDROCHLORIDE
     Dosage: 2 MG, QID (G-TUBE)
     Route: 050
  39. REGLAN [Concomitant]
     Active Substance: METOCLOPRAMIDE HYDROCHLORIDE
     Dosage: 10 MG, QID (G-TUBE)
     Route: 050
  40. METHYLPREDNISOLONE SODIUM SUCCINATE. [Concomitant]
     Active Substance: METHYLPREDNISOLONE SODIUM SUCCINATE
     Indication: HAEMATOCHEZIA
     Dosage: 15 MG, QD
     Route: 042
     Dates: start: 20170605
  41. FOLVITE [Concomitant]
     Active Substance: FOLIC ACID
     Dosage: 1.0 MG, QD (MORNING) (G-TUBE)
     Route: 050
     Dates: start: 20190415, end: 20190415
  42. ACETAMINOPHEN. [Concomitant]
     Active Substance: ACETAMINOPHEN
     Indication: PRODUCT USED FOR UNKNOWN INDICATION
     Dosage: 160 MG, Q4H PRN (G-TUBE)
     Route: 050
  43. SODIUM CHLORIDE. [Concomitant]
     Active Substance: SODIUM CHLORIDE
     Indication: PRODUCT USED FOR UNKNOWN INDICATION
     Dosage: 4 MEQ, BID (G-TUBE)
     Route: 050
  44. KEPPRA [Concomitant]
     Active Substance: LEVETIRACETAM
     Indication: SEIZURE
     Dosage: 300 MG, BID (G-TUBE)
     Route: 050
  45. KEPPRA [Concomitant]
     Active Substance: LEVETIRACETAM
     Dosage: 400 MG, BID
     Route: 042
     Dates: start: 20190410
  46. HUMIRA [Concomitant]
     Active Substance: ADALIMUMAB
     Dosage: 20 MG, QW
     Route: 058
  47. LORATADINE. [Concomitant]
     Active Substance: LORATADINE
     Indication: PRODUCT USED FOR UNKNOWN INDICATION
     Dosage: 5.0 MG, QD MORNING (G-TUBE)
     Route: 050
  48. REGLAN [Concomitant]
     Active Substance: METOCLOPRAMIDE HYDROCHLORIDE
     Indication: PRODUCT USED FOR UNKNOWN INDICATION
     Dosage: 2 MG, QID
     Route: 048
     Dates: start: 20170505
  49. CUVPOSA                            /00196202/ [Concomitant]
     Dosage: 0.5 MG, QID (G-TUBE)
     Route: 050
  50. KEPPRA [Concomitant]
     Active Substance: LEVETIRACETAM
     Dosage: 400 MG, BID
     Route: 042
     Dates: end: 20190408
  51. ATROVENT [Concomitant]
     Active Substance: IPRATROPIUM BROMIDE
     Dosage: 2.0 PUFF, QID
     Route: 055

REACTIONS (1)
  - Colitis ulcerative [Recovered/Resolved]

NARRATIVE: CASE EVENT DATE: 20190326
